FAERS Safety Report 7655148-5 (Version None)
Quarter: 2011Q3

REPORT INFORMATION
  Report Type: 
  Country: None (occurrence: None)
  Receive Date: 20110804
  Receipt Date: 20110729
  Transmission Date: 20111222
  Serious: No
  Sender: FDA-Public Use
  Company Number: US-PFIZER INC-2011153410

PATIENT
  Sex: Female
  Weight: 59.41 kg

DRUGS (7)
  1. LATANOPROST [Suspect]
     Indication: GLAUCOMA
     Dosage: UNK
     Dates: start: 20110401
  2. LUMIGAN [Suspect]
     Dosage: UNK
  3. VALIUM [Concomitant]
     Indication: INSOMNIA
     Dosage: 5 MG, UNK
  4. XALATAN [Suspect]
     Indication: GLAUCOMA
     Dosage: UNK
     Dates: start: 20010101, end: 20110101
  5. METOPROLOL [Concomitant]
     Indication: HEART RATE INCREASED
     Dosage: UNK
  6. SYNTHROID [Concomitant]
     Indication: THYROID DISORDER
     Dosage: UNK
  7. TRAVATAN [Suspect]
     Dosage: UNK

REACTIONS (2)
  - DRY EYE [None]
  - VITAMIN B12 DECREASED [None]
